FAERS Safety Report 6234206-6 (Version None)
Quarter: 2009Q2

REPORT INFORMATION
  Report Type: 
  Country: None (occurrence: None)
  Receive Date: 20090615
  Receipt Date: 20090305
  Transmission Date: 20091009
  Serious: Yes (Hospitalization)
  Sender: FDA-Public Use
  Company Number: KV200900422

PATIENT
  Age: 65 Year
  Sex: Female

DRUGS (3)
  1. METOPROLOL SUCCINATE [Suspect]
     Indication: HYPERTENSION
     Dosage: 100 MG, QD, ORAL
     Route: 048
  2. CARVEDIOL (CARVEDILOL) [Concomitant]
  3. THYROID MEDICATION [Concomitant]

REACTIONS (7)
  - ABDOMINAL PAIN UPPER [None]
  - ALOPECIA [None]
  - BLOOD PRESSURE FLUCTUATION [None]
  - DIARRHOEA [None]
  - FEELING COLD [None]
  - HEART RATE IRREGULAR [None]
  - RASH [None]
